FAERS Safety Report 4273750-8 (Version None)
Quarter: 2004Q1

REPORT INFORMATION
  Report Type: 
  Country: None (occurrence: None)
  Receive Date: 20040114
  Receipt Date: 20031230
  Transmission Date: 20041129
  Serious: Yes (Hospitalization)
  Sender: FDA-Public Use
  Company Number: 2003-BP-09074BP (1)

PATIENT
  Age: 55 Year
  Sex: Male

DRUGS (9)
  1. MICARDIS TABLETS (TA) [Suspect]
     Indication: CEREBROVASCULAR ACCIDENT
     Route: 048
     Dates: start: 20030311
  2. MICARDIS TABLETS (TA) [Suspect]
     Indication: MYOCARDIAL INFARCTION
     Route: 048
     Dates: start: 20030311
  3. MICARDIS TABLETS (TA) [Suspect]
     Indication: PROPHYLAXIS
     Route: 048
     Dates: start: 20030311
  4. RAMIPRIL [Suspect]
     Indication: CEREBROVASCULAR ACCIDENT
     Route: 048
     Dates: start: 20030311
  5. RAMIPRIL [Suspect]
     Indication: MYOCARDIAL INFARCTION
     Route: 048
     Dates: start: 20030311
  6. RAMIPRIL [Suspect]
     Indication: PROPHYLAXIS
     Route: 048
     Dates: start: 20030311
  7. PRAVACHOL [Concomitant]
  8. SODIUM [Concomitant]
  9. ASPIRIN [Concomitant]

REACTIONS (4)
  - CIRCULATORY COLLAPSE [None]
  - FALL [None]
  - LOSS OF CONSCIOUSNESS [None]
  - MALAISE [None]
